FAERS Safety Report 7392815-5 (Version None)
Quarter: 2011Q2

REPORT INFORMATION
  Report Type: 
  Country: None (occurrence: None)
  Receive Date: 20110404
  Receipt Date: 20110321
  Transmission Date: 20111010
  Serious: Yes (Other)
  Sender: FDA-Public Use
  Company Number: CA-JNJFOC-20110400936

PATIENT
  Age: 11 Month
  Sex: Male

DRUGS (2)
  1. CONCENTRATED TYLENOL INFANT DROPS [Suspect]
     Indication: ACCIDENTAL EXPOSURE
     Dosage: NEARLY A FULL 24 ML BOTTLE (1920 MG) IN A SPAN OF ONLY 2 MINUTES
     Route: 048
  2. CONCENTRATED TYLENOL INFANT DROPS [Suspect]
     Route: 048

REACTIONS (3)
  - ACCIDENTAL DRUG INTAKE BY CHILD [None]
  - PRODUCT PACKAGING ISSUE [None]
  - ACCIDENTAL OVERDOSE [None]
